FAERS Safety Report 10555315 (Version 1)
Quarter: 2014Q4

REPORT INFORMATION
  Report Type: Report from Study
  Country: US (occurrence: US)
  Receive Date: 20141030
  Receipt Date: 20141030
  Transmission Date: 20150529
  Serious: Yes (Other)
  Sender: FDA-Public Use
  Company Number: US-BRISTOL-MYERS SQUIBB COMPANY-21530472

PATIENT
  Age: 59 Year
  Sex: Male

DRUGS (15)
  1. PROVENTIL [Concomitant]
     Active Substance: ALBUTEROL
     Indication: DYSPNOEA
     Dosage: PROVENTIL 90 MCG/ACTUATION?INHALE 2 PUFFS INTO LUNGS EVERY 6 HRS,AS NEEDED
     Route: 055
  2. NIVOLUMAB [Suspect]
     Active Substance: NIVOLUMAB
     Indication: NON-SMALL CELL LUNG CANCER
     Dosage: LAST DOSE:30SEP2014
     Route: 042
     Dates: start: 20140625, end: 20140930
  3. ASPIRIN. [Concomitant]
     Active Substance: ASPIRIN
     Dosage: ASPIRIN 325MG TABS DELAYED RELEASE EVERY 6 HRS AS NEEDED
     Route: 048
  4. DUONEB [Concomitant]
     Active Substance: ALBUTEROL SULFATE\IPRATROPIUM BROMIDE
     Dosage: DUONEB 0.5MG-3MG/3ML,TAKE 3 MLBY NEBULIZATION EVERY 6 HRS
  5. PEPCID [Concomitant]
     Active Substance: FAMOTIDINE
     Dosage: PEPCID TABS
     Route: 048
  6. ROXICODONE [Concomitant]
     Active Substance: OXYCODONE HYDROCHLORIDE
     Dosage: ROXICODONE 5MG TBAS?1-2 TABS EVERY 6 HRS AS NEEDED
  7. NORCO [Concomitant]
     Active Substance: ACETAMINOPHEN\HYDROCODONE BITARTRATE
     Indication: PAIN
     Dosage: NORCO 5-325MG TABS
  8. KEPPRA [Concomitant]
     Active Substance: LEVETIRACETAM
     Dosage: 1 DF:TAKE 1 TAB 500MG TOTAL DAILY?KEPPRA TABS
     Route: 048
  9. OMEPRAZOLE. [Concomitant]
     Active Substance: OMEPRAZOLE
  10. IPILIMUMAB [Suspect]
     Active Substance: IPILIMUMAB
     Indication: NON-SMALL CELL LUNG CANCER
     Dosage: LAST DOSE:16SEP2014
     Route: 042
     Dates: start: 20140625, end: 20140916
  11. PROVENTIL [Concomitant]
     Active Substance: ALBUTEROL
     Indication: WHEEZING
     Dosage: PROVENTIL 90 MCG/ACTUATION?INHALE 2 PUFFS INTO LUNGS EVERY 6 HRS,AS NEEDED
     Route: 055
  12. TYLENOL [Concomitant]
     Active Substance: ACETAMINOPHEN
     Dosage: TYLENOL TABS,325MG?650MG EVERY 6 HRS
     Route: 048
  13. OXYGEN. [Concomitant]
     Active Substance: OXYGEN
     Dosage: OXYGEN 2L/MIN
     Route: 045
  14. LORAZEPAM. [Concomitant]
     Active Substance: LORAZEPAM
     Indication: ANXIETY
     Dosage: LORAZEPAM TABS 0.5MG?1TAB AS NEEDED
     Route: 048
  15. AMBIEN [Concomitant]
     Active Substance: ZOLPIDEM TARTRATE
     Indication: SLEEP DISORDER
     Dosage: AMBIEN 10MG TABS?1 TABS BY MOUTHLY NIGHTLY AS NEEDED
     Route: 048

REACTIONS (2)
  - Secondary adrenocortical insufficiency [Not Recovered/Not Resolved]
  - Anaemia [Not Recovered/Not Resolved]

NARRATIVE: CASE EVENT DATE: 20141014
